FAERS Safety Report 9257277 (Version 1)
Quarter: 2013Q2

REPORT INFORMATION
  Report Type: Report from Study
  Country: US (occurrence: US)
  Receive Date: 20130426
  Receipt Date: 20130426
  Transmission Date: 20140414
  Serious: Yes (Hospitalization)
  Sender: FDA-Public Use
  Company Number: PHEH2013US009053

PATIENT
  Sex: Female

DRUGS (1)
  1. AFINITOR [Suspect]
     Indication: CARCINOID TUMOUR
     Dosage: 5 MG, QD
     Route: 048

REACTIONS (2)
  - Respiratory failure [Unknown]
  - Disease complication [Unknown]
